FAERS Safety Report 10209295 (Version 1)
Quarter: 2014Q2

REPORT INFORMATION
  Report Type: Spontaneous
  Country: ES (occurrence: ES)
  Receive Date: 20140530
  Receipt Date: 20140530
  Transmission Date: 20141212
  Serious: Yes (Hospitalization)
  Sender: FDA-Public Use
  Company Number: ES-ABBVIE-14P-144-1239921-00

PATIENT
  Age: 22 Year
  Sex: Female
  Weight: 46 kg

DRUGS (6)
  1. HUMIRA [Suspect]
     Indication: CROHN^S DISEASE
     Route: 058
     Dates: start: 201311, end: 20140304
  2. HUMIRA [Suspect]
     Route: 058
     Dates: start: 20140304, end: 20140502
  3. CIPROFLOXACIN [Concomitant]
     Indication: CROHN^S DISEASE
     Route: 048
     Dates: start: 201403
  4. METRONIDAZOLE [Concomitant]
     Indication: CROHN^S DISEASE
     Route: 048
     Dates: start: 201403
  5. MESALAZINA [Concomitant]
     Indication: PRODUCT USED FOR UNKNOWN INDICATION
     Route: 048
     Dates: start: 201403
  6. PREDNISONA [Concomitant]
     Indication: CROHN^S DISEASE
     Route: 048
     Dates: start: 201403

REACTIONS (5)
  - Anaemia [Recovered/Resolved]
  - Toxicity to various agents [Recovered/Resolved]
  - Drug effect decreased [Recovered/Resolved]
  - Enterocolonic fistula [Unknown]
  - Subileus [Recovered/Resolved]
